FAERS Safety Report 20646711 (Version 1)
Quarter: 2022Q1

REPORT INFORMATION
  Report Type: Spontaneous
  Country: RO (occurrence: RO)
  Receive Date: 20220329
  Receipt Date: 20220329
  Transmission Date: 20220423
  Serious: Yes (Hospitalization, Other)
  Sender: FDA-Public Use
  Company Number: RO-AMGEN-ROUSP2022052118

PATIENT
  Age: 48 Year
  Sex: Male

DRUGS (5)
  1. VECTIBIX [Suspect]
     Active Substance: PANITUMUMAB
     Indication: Colorectal cancer metastatic
     Dosage: UNK
     Route: 042
     Dates: start: 202009
  2. LEUCOVORIN [Suspect]
     Active Substance: LEUCOVORIN
     Indication: Product used for unknown indication
     Dosage: UNK
     Route: 065
     Dates: start: 202009
  3. FLUOROURACIL [Suspect]
     Active Substance: FLUOROURACIL
     Indication: Product used for unknown indication
     Dosage: UNK
     Route: 065
     Dates: start: 202009
  4. CAPECITABINE [Suspect]
     Active Substance: CAPECITABINE
     Indication: Product used for unknown indication
     Dosage: UNK
     Route: 065
  5. OXALIPLATIN [Suspect]
     Active Substance: OXALIPLATIN
     Indication: Product used for unknown indication
     Dosage: UNK
     Route: 065

REACTIONS (16)
  - Uveitis [Unknown]
  - Retinal detachment [Unknown]
  - Acute endocarditis [Unknown]
  - Staphylococcal bacteraemia [Unknown]
  - Embolism [Unknown]
  - Cerebral atrophy [Unknown]
  - Coronary artery thrombosis [Unknown]
  - Blindness unilateral [Unknown]
  - Pulmonary infarction [Unknown]
  - Cardiac operation [Unknown]
  - Skin toxicity [Unknown]
  - Pulmonary mass [Unknown]
  - Pyrexia [Unknown]
  - Candida infection [Unknown]
  - Liver disorder [Unknown]
  - Infection [Unknown]

NARRATIVE: CASE EVENT DATE: 20210201
